FAERS Safety Report 4842283-X (Version None)
Quarter: 2005Q4

REPORT INFORMATION
  Report Type: 
  Country: None (occurrence: None)
  Receive Date: 20051129
  Receipt Date: 20051118
  Transmission Date: 20060501
  Serious: Yes (Other)
  Sender: FDA-Public Use
  Company Number: 200514002GDS

PATIENT
  Age: 22 Year
  Sex: Female

DRUGS (2)
  1. AVELOX [Suspect]
     Dosage: 400 MG, QD,
  2. ALESSE [Concomitant]

REACTIONS (5)
  - ARTHRALGIA [None]
  - C-REACTIVE PROTEIN INCREASED [None]
  - DIFFICULTY IN WALKING [None]
  - RED BLOOD CELL SEDIMENTATION RATE INCREASED [None]
  - TENDONITIS [None]
